FAERS Safety Report 8432094-0 (Version None)
Quarter: 2012Q2

REPORT INFORMATION
  Report Type: 
  Country: None (occurrence: None)
  Receive Date: 20120613
  Receipt Date: 20120612
  Transmission Date: 20120825
  Serious: Yes (Other)
  Sender: FDA-Public Use
  Company Number: US-PFIZER INC-2012141455

PATIENT
  Sex: Female
  Weight: 51.247 kg

DRUGS (3)
  1. XANAX [Suspect]
     Indication: ANXIETY
     Dosage: UNK
     Dates: start: 20110101
  2. PSEUDOEPHEDRINE HCL [Interacting]
     Dosage: UNK
  3. PHENYLEPHRINE HCL [Interacting]
     Dosage: UNK

REACTIONS (2)
  - HALLUCINATION, VISUAL [None]
  - DRUG INTERACTION [None]
